FAERS Safety Report 25964703 (Version 1)
Quarter: 2025Q4

REPORT INFORMATION
  Report Type: Report from Study
  Country: CA (occurrence: CA)
  Receive Date: 20251027
  Receipt Date: 20251027
  Transmission Date: 20260118
  Serious: Yes (Death, Hospitalization, Other)
  Sender: IPSEN BIOPHARMACEUTICALS, INC.
  Company Number: CA-IPSEN Group, Research and Development-2025-26309

PATIENT
  Sex: Female

DRUGS (18)
  1. LANREOTIDE ACETATE [Suspect]
     Active Substance: LANREOTIDE ACETATE
     Indication: Gastroenteropancreatic neuroendocrine tumour disease
     Dosage: DEEP SUBCUTANEOUS
     Route: 058
     Dates: start: 20170728
  2. ATORVASTATIN [Concomitant]
     Active Substance: ATORVASTATIN
  3. RAMIPRIL [Concomitant]
     Active Substance: RAMIPRIL
  4. FERROUS SULFATE [Concomitant]
     Active Substance: FERROUS SULFATE
  5. AMLODIPINE [Concomitant]
     Active Substance: AMLODIPINE BESYLATE
  6. Aandoz Metoproolol SR [Concomitant]
  7. MAGNESIUM GLUCONATE [Concomitant]
     Active Substance: MAGNESIUM GLUCONATE
  8. Micro-k Potassium Chiorid [Concomitant]
  9. ASA Lamotrigine [Concomitant]
  10. VITAMIN D [Concomitant]
     Active Substance: VITAMIN D NOS
  11. VITAMIN C [Concomitant]
     Active Substance: ASCORBIC ACID
  12. COENZYME Q10 [Concomitant]
     Active Substance: DIETARY SUPPLEMENT\UBIDECARENONE
  13. Teva Pantolprzole magnesium [Concomitant]
  14. ESCITALOPRAM [Concomitant]
     Active Substance: ESCITALOPRAM OXALATE
  15. CALCIUM [Concomitant]
     Active Substance: CALCIUM
  16. ALENDRONATE [Concomitant]
     Active Substance: ALENDRONATE SODIUM
  17. TRESIBA [Concomitant]
     Active Substance: INSULIN DEGLUDEC
  18. Humaloge Insulin [Concomitant]

REACTIONS (3)
  - Death [Fatal]
  - Hospitalisation [Unknown]
  - Product dose omission issue [Unknown]
